FAERS Safety Report 4302662-6 (Version None)
Quarter: 2004Q1

REPORT INFORMATION
  Report Type: 
  Country: None (occurrence: None)
  Receive Date: 20040220
  Receipt Date: 20040217
  Transmission Date: 20041129
  Serious: Yes (Hospitalization, Other)
  Sender: FDA-Public Use
  Company Number: DEWYE567509FEB04

PATIENT
  Age: 54 Year
  Sex: Female

DRUGS (2)
  1. VENLAFAXINE HCL [Suspect]
     Route: 048
     Dates: start: 20040208, end: 20040208
  2. ALCOHOL (ETHANOL, 0) [Suspect]
     Route: 048
     Dates: start: 20040208, end: 20040208

REACTIONS (2)
  - INTENTIONAL OVERDOSE [None]
  - SOPOR [None]
